FAERS Safety Report 23842826 (Version 1)
Quarter: 2024Q2

REPORT INFORMATION
  Report Type: Spontaneous
  Country: US (occurrence: US)
  Receive Date: 20240510
  Receipt Date: 20240510
  Transmission Date: 20240716
  Serious: No
  Sender: FDA-Public Use
  Company Number: US-PFIZER INC-202400104999

PATIENT
  Sex: Female

DRUGS (1)
  1. ABROCITINIB [Suspect]
     Active Substance: ABROCITINIB
     Dosage: UNK
     Dates: start: 20231109

REACTIONS (2)
  - Eye disorder [Recovering/Resolving]
  - Viral infection [Recovering/Resolving]
